FAERS Safety Report 19987251 (Version 1)
Quarter: 2021Q4

REPORT INFORMATION
  Report Type: Report from Study
  Country: US (occurrence: US)
  Receive Date: 20211022
  Receipt Date: 20211022
  Transmission Date: 20220303
  Serious: Yes (Life-Threatening, Hospitalization)
  Sender: FDA-Public Use
  Company Number: US-TG THERAPEUTICS INC.-UTX-TG201-201800637

PATIENT
  Age: 73 Year
  Sex: Male
  Weight: 63.49 kg

DRUGS (2)
  1. UMBRALISIB [Suspect]
     Active Substance: UMBRALISIB
     Indication: Chronic lymphocytic leukaemia
     Dosage: 800 MG, QD
     Route: 048
     Dates: start: 20180208, end: 20180502
  2. UMBRALISIB [Suspect]
     Active Substance: UMBRALISIB
     Dosage: UNK
     Dates: start: 20180530

REACTIONS (1)
  - Pneumonia [Recovered/Resolved]

NARRATIVE: CASE EVENT DATE: 20180510
